FAERS Safety Report 12446224 (Version 1)
Quarter: 2016Q2

REPORT INFORMATION
  Report Type: Spontaneous
  Country: US (occurrence: None)
  Receive Date: 20160607
  Receipt Date: 20160607
  Transmission Date: 20160815
  Serious: No
  Sender: FDA-Public Use
  Company Number: None

PATIENT
  Age: 48 Year
  Sex: Female
  Weight: 86.18 kg

DRUGS (7)
  1. VITAMIN D [Concomitant]
     Active Substance: CHOLECALCIFEROL
  2. IBUPROFEN. [Concomitant]
     Active Substance: IBUPROFEN
  3. BUPROPION. [Concomitant]
     Active Substance: BUPROPION
  4. MELATONIN [Concomitant]
     Active Substance: MELATONIN
  5. NAPROXEN. [Concomitant]
     Active Substance: NAPROXEN
  6. LIDOCAINE PATCH 5% [Suspect]
     Active Substance: LIDOCAINE
     Indication: BACK PAIN
     Route: 061
     Dates: start: 20160517, end: 20160604
  7. BIOTIN [Concomitant]
     Active Substance: BIOTIN

REACTIONS (2)
  - Poor quality drug administered [None]
  - Drug ineffective [None]

NARRATIVE: CASE EVENT DATE: 20160517
